FAERS Safety Report 9164623 (Version 1)
Quarter: 2013Q1

REPORT INFORMATION
  Report Type: Spontaneous
  Country: US (occurrence: US)
  Receive Date: 20130315
  Receipt Date: 20130315
  Transmission Date: 20140127
  Serious: Yes (Other)
  Sender: FDA-Public Use
  Company Number: US-JNJFOC-20130302234

PATIENT
  Sex: Male
  Weight: 72.58 kg

DRUGS (8)
  1. DURAGESIC [Suspect]
     Indication: PAIN
     Dosage: STRENGTH 100MCG
     Route: 062
  2. DURAGESIC [Suspect]
     Indication: PAIN
     Dosage: STRENGTH 100MCG
     Route: 062
     Dates: end: 2012
  3. FENTANYL [Suspect]
     Indication: PAIN
     Dosage: STRENGTH 100MCG
     Route: 062
     Dates: start: 2012, end: 2012
  4. FENTANYL [Suspect]
     Indication: PAIN
     Dosage: STRENGTH 100MCG
     Route: 062
  5. SANDOZ  FENTANYL TRANSDERMAL SYSTEM [Suspect]
     Indication: PAIN
     Route: 062
     Dates: end: 201212
  6. DURAGESIC MATRIX [Suspect]
     Indication: PAIN
     Dosage: STRENGTH 100MCG
     Route: 062
     Dates: start: 2012
  7. DURAGESIC MATRIX [Suspect]
     Indication: PAIN
     Dosage: STRENGHT 100MCG
     Route: 062
     Dates: end: 2012
  8. MALLINCKRODT FENTANYL PATCHES [Suspect]
     Indication: PAIN
     Route: 062
     Dates: start: 201212

REACTIONS (7)
  - Drug hypersensitivity [Recovered/Resolved]
  - Tooth extraction [Recovered/Resolved]
  - Adverse event [Unknown]
  - Urticaria [Not Recovered/Not Resolved]
  - Hyperhidrosis [Not Recovered/Not Resolved]
  - Pruritus [Not Recovered/Not Resolved]
  - Product quality issue [Unknown]
